FAERS Safety Report 19089007 (Version 1)
Quarter: 2021Q2

REPORT INFORMATION
  Report Type: Spontaneous
  Country: US (occurrence: US)
  Receive Date: 20210403
  Receipt Date: 20210403
  Transmission Date: 20210717
  Serious: Yes (Hospitalization)
  Sender: FDA-Public Use
  Company Number: US-ROCHE-2797098

PATIENT
  Age: 79 Year
  Sex: Female

DRUGS (8)
  1. XOLAIR [Suspect]
     Active Substance: OMALIZUMAB
     Indication: BRONCHIECTASIS
  2. IBRANCE [Concomitant]
     Active Substance: PALBOCICLIB
     Dosage: 75 MG (DOSE REDUCED BY TAKING 21 DAYS AND 7 DAYS OFF)
     Route: 048
  3. XOLAIR [Suspect]
     Active Substance: OMALIZUMAB
     Indication: ASTHMA
  4. XOLAIR [Suspect]
     Active Substance: OMALIZUMAB
     Indication: ASTHMA
     Route: 065
  5. IBRANCE [Concomitant]
     Active Substance: PALBOCICLIB
     Indication: BREAST CANCER
     Dosage: 125 MG
     Route: 048
  6. FASLODEX [Concomitant]
     Active Substance: FULVESTRANT
     Indication: PRODUCT USED FOR UNKNOWN INDICATION
     Dosage: 1 DF, QMO ((2 INJECTIONS ONE IN BOTH HIPS))
     Route: 065
  7. XOLAIR [Suspect]
     Active Substance: OMALIZUMAB
     Indication: CHRONIC OBSTRUCTIVE PULMONARY DISEASE
     Dosage: (2 INJECTIONS IN LEFT ARM)
     Route: 058
     Dates: start: 2018
  8. XOLAIR [Suspect]
     Active Substance: OMALIZUMAB
     Indication: BRONCHIECTASIS

REACTIONS (5)
  - Illness [Recovered/Resolved]
  - Off label use [Unknown]
  - Weight decreased [Recovered/Resolved]
  - Influenza [Recovered/Resolved]
  - Intentional product use issue [Unknown]

NARRATIVE: CASE EVENT DATE: 2018
